FAERS Safety Report 11243775 (Version 1)
Quarter: 2015Q3

REPORT INFORMATION
  Report Type: Spontaneous
  Country: US (occurrence: None)
  Receive Date: 20150702
  Receipt Date: 20150702
  Transmission Date: 20151125
  Serious: Yes (Hospitalization)
  Sender: FDA-Public Use
  Company Number: None

PATIENT
  Age: 52 Year
  Sex: Male
  Weight: 69.03 kg

DRUGS (1)
  1. CISPLATIN. [Suspect]
     Active Substance: CISPLATIN
     Dates: start: 20150519

REACTIONS (16)
  - Soft tissue infection [None]
  - Skin disorder [None]
  - Oedema [None]
  - Pulmonary mass [None]
  - Laryngeal disorder [None]
  - Pharyngeal disorder [None]
  - Jaw disorder [None]
  - Type 2 diabetes mellitus [None]
  - Abscess [None]
  - Subcutaneous abscess [None]
  - Metastasis [None]
  - Necrosis [None]
  - Computerised tomogram abnormal [None]
  - Sinus disorder [None]
  - Lymphadenopathy [None]
  - Neoplasm malignant [None]

NARRATIVE: CASE EVENT DATE: 20150512
